FAERS Safety Report 11429075 (Version 1)
Quarter: 2015Q3

REPORT INFORMATION
  Report Type: Spontaneous
  Country: US (occurrence: US)
  Receive Date: 20150828
  Receipt Date: 20150828
  Transmission Date: 20151125
  Serious: No
  Sender: FDA-Public Use
  Company Number: US-ROCHE-766907

PATIENT
  Age: 47 Year
  Sex: Male

DRUGS (2)
  1. RIBAVIRIN. [Suspect]
     Active Substance: RIBAVIRIN
     Indication: HEPATITIS C
     Dosage: DIVIDED DOSES
     Route: 065
  2. PEGASYS [Suspect]
     Active Substance: PEGINTERFERON ALFA-2A
     Indication: HEPATITIS C
     Dosage: PRE-FILLED SYRINGE
     Route: 065

REACTIONS (9)
  - Dyskinesia [Not Recovered/Not Resolved]
  - Diarrhoea [Unknown]
  - Anxiety [Not Recovered/Not Resolved]
  - Headache [Unknown]
  - Dyspepsia [Unknown]
  - Insomnia [Recovering/Resolving]
  - Hyperhidrosis [Unknown]
  - Vision blurred [Unknown]
  - Chills [Unknown]

NARRATIVE: CASE EVENT DATE: 20110310
